FAERS Safety Report 7321712-6 (Version None)
Quarter: 2011Q1

REPORT INFORMATION
  Report Type: 
  Country: None (occurrence: None)
  Receive Date: 20110228
  Receipt Date: 20100721
  Transmission Date: 20110831
  Serious: Yes (Hospitalization, Other)
  Sender: FDA-Public Use
  Company Number: US-PFIZER INC-2010091927

PATIENT
  Sex: Female

DRUGS (2)
  1. GEODON [Suspect]
     Indication: BIPOLAR I DISORDER
     Dosage: 120 MG/DAY
  2. LITHIUM [Suspect]
     Indication: BIPOLAR I DISORDER
     Dosage: UNK

REACTIONS (2)
  - MANIA [None]
  - TARDIVE DYSKINESIA [None]
